FAERS Safety Report 9674438 (Version 2)
Quarter: 2013Q4

REPORT INFORMATION
  Report Type: Spontaneous
  Country: FR (occurrence: FR)
  Receive Date: 20131107
  Receipt Date: 20131114
  Transmission Date: 20140711
  Serious: Yes (Other)
  Sender: FDA-Public Use
  Company Number: PHHY2013FR123374

PATIENT
  Age: 29 Year
  Sex: Male

DRUGS (8)
  1. ISONIAZID [Suspect]
     Indication: PULMONARY TUBERCULOSIS
  2. ISONIAZID [Suspect]
     Indication: LYMPH NODE TUBERCULOSIS
  3. RIFAMPICIN [Suspect]
     Indication: PULMONARY TUBERCULOSIS
  4. RIFAMPICIN [Suspect]
     Indication: LYMPH NODE TUBERCULOSIS
  5. ETHAMBUTOL [Suspect]
     Indication: PULMONARY TUBERCULOSIS
  6. ETHAMBUTOL [Suspect]
     Indication: LYMPH NODE TUBERCULOSIS
  7. PYRAZINAMIDE [Suspect]
     Indication: PULMONARY TUBERCULOSIS
  8. PYRAZINAMIDE [Suspect]
     Indication: LYMPH NODE TUBERCULOSIS

REACTIONS (7)
  - Paradoxical drug reaction [Unknown]
  - Pericarditis [Unknown]
  - Lymphadenopathy [Recovering/Resolving]
  - Pericardial effusion [Recovering/Resolving]
  - Necrotising granulomatous lymphadenitis [Recovering/Resolving]
  - Pyrexia [Recovered/Resolved]
  - Lymph node tuberculosis [Recovering/Resolving]
